FAERS Safety Report 11637303 (Version 1)
Quarter: 2015Q4

REPORT INFORMATION
  Report Type: Spontaneous
  Country: US (occurrence: US)
  Receive Date: 20151016
  Receipt Date: 20151016
  Transmission Date: 20160304
  Serious: Yes (Hospitalization, Other)
  Sender: FDA-Public Use
  Company Number: US-PFIZER INC-2015343602

PATIENT
  Age: 70 Year
  Sex: Male
  Weight: 71 kg

DRUGS (1)
  1. REVATIO [Suspect]
     Active Substance: SILDENAFIL CITRATE
     Dosage: 20 MG, 3X/DAY
     Route: 048

REACTIONS (6)
  - Pulmonary oedema [Recovering/Resolving]
  - Pericardial effusion [Recovering/Resolving]
  - Drug ineffective [Unknown]
  - Fluid retention [Recovering/Resolving]
  - Peripheral swelling [Recovering/Resolving]
  - Nervousness [Unknown]

NARRATIVE: CASE EVENT DATE: 2015
